FAERS Safety Report 15326943 (Version 11)
Quarter: 2019Q3

REPORT INFORMATION
  Report Type: Report from Study
  Country: BR (occurrence: BR)
  Receive Date: 20180828
  Receipt Date: 20190911
  Transmission Date: 20191004
  Serious: Yes (Hospitalization, Disabling, Other)
  Sender: FDA-Public Use
  Company Number: PHHY2018BR079501

PATIENT
  Age: 72 Year
  Sex: Male
  Weight: 68 kg

DRUGS (11)
  1. COSENTYX [Suspect]
     Active Substance: SECUKINUMAB
     Dosage: UNK
     Route: 058
     Dates: start: 20181204
  2. COSENTYX [Suspect]
     Active Substance: SECUKINUMAB
     Dosage: UNK
     Route: 058
     Dates: start: 20181212
  3. ACITRETIN. [Concomitant]
     Active Substance: ACITRETIN
     Indication: PRODUCT USED FOR UNKNOWN INDICATION
     Route: 065
  4. COSENTYX [Suspect]
     Active Substance: SECUKINUMAB
     Dosage: 300 MG, QMO
     Route: 058
     Dates: end: 20180712
  5. COSENTYX [Suspect]
     Active Substance: SECUKINUMAB
     Indication: PSORIATIC ARTHROPATHY
     Dosage: 300 MG, QW (5 WEEKLY DOSES)
     Route: 058
     Dates: start: 20180515
  6. COSENTYX [Suspect]
     Active Substance: SECUKINUMAB
     Dosage: UNK
     Route: 058
     Dates: start: 20181127
  7. CYCLOSPORIN [Concomitant]
     Active Substance: CYCLOSPORINE
     Indication: PRODUCT USED FOR UNKNOWN INDICATION
     Route: 065
  8. RISPERIDONE. [Concomitant]
     Active Substance: RISPERIDONE
     Indication: PRODUCT USED FOR UNKNOWN INDICATION
     Route: 065
  9. COSENTYX [Suspect]
     Active Substance: SECUKINUMAB
     Dosage: UNK
     Route: 058
     Dates: start: 20181219
  10. COSENTYX [Suspect]
     Active Substance: SECUKINUMAB
     Dosage: UNK
     Route: 058
     Dates: start: 20181225
  11. COSENTYX [Suspect]
     Active Substance: SECUKINUMAB
     Dosage: UNK
     Route: 065
     Dates: start: 20190829

REACTIONS (42)
  - Dyspnoea [Recovered/Resolved]
  - Diplegia [Recovering/Resolving]
  - Influenza [Unknown]
  - Skin haemorrhage [Not Recovered/Not Resolved]
  - Peripheral swelling [Recovering/Resolving]
  - Mobility decreased [Recovered/Resolved with Sequelae]
  - Feeding disorder [Recovering/Resolving]
  - Malaise [Recovered/Resolved]
  - Skin sensitisation [Not Recovered/Not Resolved]
  - Blood glucose increased [Not Recovered/Not Resolved]
  - Skin exfoliation [Not Recovered/Not Resolved]
  - Skin wound [Unknown]
  - Pollakiuria [Recovering/Resolving]
  - Concomitant disease aggravated [Not Recovered/Not Resolved]
  - Arthralgia [Unknown]
  - Gait disturbance [Not Recovered/Not Resolved]
  - Infection [Not Recovered/Not Resolved]
  - Swelling [Not Recovered/Not Resolved]
  - Asthenia [Not Recovered/Not Resolved]
  - Catarrh [Not Recovered/Not Resolved]
  - Bowel movement irregularity [Recovered/Resolved]
  - Skin lesion [Not Recovered/Not Resolved]
  - Skin infection [Recovered/Resolved]
  - Pneumonia [Recovered/Resolved]
  - Catarrh [Recovered/Resolved]
  - Wheezing [Recovered/Resolved]
  - Psoriatic arthropathy [Not Recovered/Not Resolved]
  - Erythema [Not Recovered/Not Resolved]
  - Somnolence [Recovered/Resolved with Sequelae]
  - Depression [Not Recovered/Not Resolved]
  - Pruritus [Recovering/Resolving]
  - Joint stiffness [Not Recovered/Not Resolved]
  - Decreased immune responsiveness [Recovered/Resolved]
  - Renal disorder [Unknown]
  - Gait inability [Not Recovered/Not Resolved]
  - Cough [Not Recovered/Not Resolved]
  - Weight decreased [Recovering/Resolving]
  - Joint lock [Not Recovered/Not Resolved]
  - Musculoskeletal stiffness [Not Recovered/Not Resolved]
  - Pain in extremity [Unknown]
  - Incorrect dose administered [Unknown]
  - Product prescribing error [Not Recovered/Not Resolved]

NARRATIVE: CASE EVENT DATE: 201807
